FAERS Safety Report 15456474 (Version 1)
Quarter: 2018Q4

REPORT INFORMATION
  Report Type: Report from Study
  Country: GR (occurrence: GR)
  Receive Date: 20181002
  Receipt Date: 20181002
  Transmission Date: 20190204
  Serious: Yes (Hospitalization, Other)
  Sender: FDA-Public Use
  Company Number: GR-SA-2018SA266082

PATIENT
  Age: 81 Year
  Sex: Male

DRUGS (3)
  1. INSULIN GLARGINE [Suspect]
     Active Substance: INSULIN GLARGINE
     Indication: HYPOGLYCAEMIA
  2. TRAJENTA [Concomitant]
     Active Substance: LINAGLIPTIN
  3. INSULIN GLARGINE [Suspect]
     Active Substance: INSULIN GLARGINE
     Indication: DIABETES MELLITUS
     Dosage: 30 U, QD
     Route: 058
     Dates: start: 201712

REACTIONS (5)
  - Pemphigoid [Recovering/Resolving]
  - Blood glucose fluctuation [Unknown]
  - Scleroderma [Unknown]
  - Product use issue [Unknown]
  - Blood glucose increased [Unknown]

NARRATIVE: CASE EVENT DATE: 201712
